APPROVED DRUG PRODUCT: GLYCOPYRROLATE
Active Ingredient: GLYCOPYRROLATE
Strength: 2MG
Dosage Form/Route: TABLET;ORAL
Application: A040844 | Product #002 | TE Code: AA
Applicant: SUN PHARMACEUTICAL INDUSTRIES LTD
Approved: Aug 18, 2009 | RLD: No | RS: No | Type: RX